FAERS Safety Report 7292753-2 (Version None)
Quarter: 2011Q1

REPORT INFORMATION
  Report Type: 
  Country: None (occurrence: None)
  Receive Date: 20110215
  Receipt Date: 20110204
  Transmission Date: 20110831
  Serious: Yes (Death, Other)
  Sender: FDA-Public Use
  Company Number: JP-SANOFI-AVENTIS-2011SA008986

PATIENT
  Age: 12 Year

DRUGS (12)
  1. FLUDARABINE PHOSPHATE [Suspect]
     Indication: PRECURSOR T-LYMPHOBLASTIC LYMPHOMA/LEUKAEMIA
     Route: 065
  2. PREDNISOLONE [Suspect]
     Indication: PRECURSOR T-LYMPHOBLASTIC LYMPHOMA/LEUKAEMIA
     Dosage: 1.25 MG/KG, QDX4
     Route: 065
  3. VINDESINE [Suspect]
     Indication: PRECURSOR T-LYMPHOBLASTIC LYMPHOMA/LEUKAEMIA
     Route: 065
  4. METHYLPREDNISOLONE [Suspect]
     Indication: PRECURSOR T-LYMPHOBLASTIC LYMPHOMA/LEUKAEMIA
     Dosage: PULSE THERAPY
     Route: 065
  5. METHOTREXATE [Concomitant]
  6. ARA-C [Suspect]
     Indication: PRECURSOR T-LYMPHOBLASTIC LYMPHOMA/LEUKAEMIA
     Route: 065
  7. VINCRISTINE [Suspect]
     Indication: PRECURSOR T-LYMPHOBLASTIC LYMPHOMA/LEUKAEMIA
     Dosage: 1/3 OF THE STANDARD DOSE
     Route: 065
  8. TACROLIMUS [Concomitant]
  9. PREDNISOLONE [Suspect]
     Dosage: 1.25 MG/KG, QDX4
     Route: 065
  10. ELSPAR [Suspect]
     Indication: PRECURSOR T-LYMPHOBLASTIC LYMPHOMA/LEUKAEMIA
     Dosage: 1-3 OF THE STANDARD DOSE DOSE:6000 INTERNATIONAL UNIT(S)/SQUARE METER
     Route: 065
  11. CYCLOPHOSPHAMIDE [Suspect]
     Indication: PRECURSOR T-LYMPHOBLASTIC LYMPHOMA/LEUKAEMIA
     Dosage: 1/3 OF THE STANDARD DOSE
     Route: 065
  12. MYCOPHENOLATE MOFETIL [Concomitant]

REACTIONS (2)
  - TOXICITY TO VARIOUS AGENTS [None]
  - PRECURSOR T-LYMPHOBLASTIC LYMPHOMA/LEUKAEMIA [None]
